FAERS Safety Report 21329946 (Version 2)
Quarter: 2022Q4

REPORT INFORMATION
  Report Type: Report from Study
  Country: US (occurrence: US)
  Receive Date: 20220913
  Receipt Date: 20221124
  Transmission Date: 20230112
  Serious: No
  Sender: FDA-Public Use
  Company Number: US-SA-SAC20220912000162

PATIENT
  Age: 82 Year
  Sex: Female

DRUGS (1)
  1. KEVZARA [Suspect]
     Active Substance: SARILUMAB
     Dosage: 200MG, QOW
     Route: 058
     Dates: start: 20220422

REACTIONS (2)
  - Erythema [Unknown]
  - Skin swelling [Unknown]

NARRATIVE: CASE EVENT DATE: 20220101
